FAERS Safety Report 7733703-1 (Version None)
Quarter: 2011Q3

REPORT INFORMATION
  Report Type: 
  Country: None (occurrence: None)
  Receive Date: 20110902
  Receipt Date: 20110902
  Transmission Date: 20111222
  Serious: No
  Sender: FDA-Public Use
  Company Number: None

PATIENT
  Age: 71 Year
  Sex: Female
  Weight: 58.9676 kg

DRUGS (2)
  1. NARDIL [Suspect]
     Indication: ANXIETY
     Dosage: 15 MG TID
  2. FELDENE [Suspect]
     Indication: ANXIETY

REACTIONS (5)
  - SKIN EXFOLIATION [None]
  - SCAR [None]
  - CHEMICAL BURN OF SKIN [None]
  - PRODUCT SUBSTITUTION ISSUE [None]
  - CONTUSION [None]
